FAERS Safety Report 8923336 (Version 1)
Quarter: 2012Q4

REPORT INFORMATION
  Report Type: Spontaneous
  Country: US (occurrence: None)
  Receive Date: 20121115
  Receipt Date: 20121115
  Transmission Date: 20130627
  Serious: No
  Sender: FDA-Public Use
  Company Number: None

PATIENT
  Age: 52 Year
  Sex: Female

DRUGS (2)
  1. LEVOFLOXACIN [Suspect]
     Dates: start: 20110427, end: 20110503
  2. NITROFURANTOIN [Suspect]
     Dates: start: 20120809, end: 201204

REACTIONS (4)
  - Autoimmune hepatitis [None]
  - Hepatic necrosis [None]
  - Antinuclear antibody positive [None]
  - Drug administration error [None]
